FAERS Safety Report 12645391 (Version 1)
Quarter: 2016Q3

REPORT INFORMATION
  Report Type: Spontaneous
  Country: US (occurrence: US)
  Receive Date: 20160811
  Receipt Date: 20160811
  Transmission Date: 20161109
  Serious: No
  Sender: FDA-Public Use
  Company Number: US-JAZZ-2016-US-004510

PATIENT
  Age: 30 Year
  Sex: Female

DRUGS (27)
  1. OXYCODONE HCL IR [Concomitant]
  2. XYZAL [Concomitant]
     Active Substance: LEVOCETIRIZINE DIHYDROCHLORIDE
  3. COENZYME Q10 [Concomitant]
     Active Substance: UBIDECARENONE
  4. VITAMIN B2 [Concomitant]
     Active Substance: RIBOFLAVIN
  5. OXYCONTIN [Concomitant]
     Active Substance: OXYCODONE HYDROCHLORIDE
  6. CLINDAMYCIN PHOSPHATE. [Concomitant]
     Active Substance: CLINDAMYCIN PHOSPHATE
  7. XYREM [Suspect]
     Active Substance: SODIUM OXYBATE
     Indication: CATAPLEXY
     Dosage: 3 G, BID
     Route: 048
     Dates: start: 201602
  8. NEURONTIN [Concomitant]
     Active Substance: GABAPENTIN
  9. XYREM [Suspect]
     Active Substance: SODIUM OXYBATE
     Indication: NARCOLEPSY
     Dosage: 2.25 G, BID
     Route: 048
     Dates: start: 201602, end: 201602
  10. MAGNESIUM OXIDE. [Concomitant]
     Active Substance: MAGNESIUM OXIDE
  11. CLOBETASOL [Concomitant]
     Active Substance: CLOBETASOL
  12. TRIAMCINOLONE [Concomitant]
     Active Substance: TRIAMCINOLONE
  13. GRALISE ER [Concomitant]
  14. MACROBID [Concomitant]
     Active Substance: NITROFURANTOIN\NITROFURANTOIN MONOHYDRATE
  15. LEVETIRACETAM. [Concomitant]
     Active Substance: LEVETIRACETAM
  16. NASONEX [Concomitant]
     Active Substance: MOMETASONE FUROATE
  17. ASTELIN [Concomitant]
     Active Substance: AZELASTINE HYDROCHLORIDE
  18. BIOTIN [Concomitant]
     Active Substance: BIOTIN
  19. XANAX [Concomitant]
     Active Substance: ALPRAZOLAM
  20. LACTULOSE. [Concomitant]
     Active Substance: LACTULOSE
  21. ADDERALL [Concomitant]
     Active Substance: AMPHETAMINE ASPARTATE\AMPHETAMINE SULFATE\DEXTROAMPHETAMINE SACCHARATE\DEXTROAMPHETAMINE SULFATE
  22. NITRO-BID [Concomitant]
     Active Substance: NITROGLYCERIN
  23. TROPICAMIDE. [Concomitant]
     Active Substance: TROPICAMIDE
  24. VITAMIN D [Concomitant]
     Active Substance: CHOLECALCIFEROL
  25. ARTIFICIAL TEARS [Concomitant]
     Active Substance: GLYCERIN\HYPROMELLOSES\POLYETHYLENE GLYCOL 400
  26. CLARITIN [Concomitant]
     Active Substance: LORATADINE
  27. LIDOCAINE. [Concomitant]
     Active Substance: LIDOCAINE

REACTIONS (5)
  - Tachyphrenia [Not Recovered/Not Resolved]
  - Therapeutic response unexpected [Unknown]
  - Restless legs syndrome [Recovering/Resolving]
  - Anxiety [Not Recovered/Not Resolved]
  - Pre-existing condition improved [Unknown]

NARRATIVE: CASE EVENT DATE: 201602
